FAERS Safety Report 24054233 (Version 1)
Quarter: 2024Q3

REPORT INFORMATION
  Report Type: Report from Study
  Country: DE (occurrence: DE)
  Receive Date: 20240705
  Receipt Date: 20240705
  Transmission Date: 20241017
  Serious: Yes (Hospitalization, Other)
  Sender: BIOCON
  Company Number: None

PATIENT

DRUGS (3)
  1. HULIO [Suspect]
     Active Substance: ADALIMUMAB-FKJP
     Indication: Product used for unknown indication
     Dosage: 40 MILLIGRAM, Q2W, SOLUTION FOR INJECTION
     Route: 065
     Dates: start: 202207
  2. HULIO [Suspect]
     Active Substance: ADALIMUMAB-FKJP
     Dosage: 40 MILLIGRAM, SOLUTION FOR INJECTION
     Route: 065
     Dates: start: 20221130
  3. HULIO [Suspect]
     Active Substance: ADALIMUMAB-FKJP
     Dosage: UNK, INDUCTION WITH 160 MG AND 80 MILLIGRAM, SOLUTION FOR INJECTION
     Route: 065
     Dates: start: 202206

REACTIONS (6)
  - Abscess [Unknown]
  - Gastroenteritis [Unknown]
  - Abdominal pain [Recovered/Resolved]
  - Colitis [Recovered/Resolved]
  - Arthralgia [Unknown]
  - Infection [Unknown]

NARRATIVE: CASE EVENT DATE: 20221211
